FAERS Safety Report 8937999 (Version 1)
Quarter: 2012Q4

REPORT INFORMATION
  Report Type: 
  Country: DE (occurrence: GB)
  Receive Date: 20121130
  Receipt Date: 20121130
  Transmission Date: 20130627
  Serious: Yes (Other)
  Sender: FDA-Public Use
  Company Number: GB-BRISTOL-MYERS SQUIBB COMPANY-17157595

PATIENT
  Age: 60 Year
  Sex: Female
  Weight: 88 kg

DRUGS (9)
  1. METFORMIN HCL [Suspect]
  2. BYETTA [Suspect]
     Indication: TYPE 2 DIABETES MELLITUS
     Dosage: 10mcg
     Route: 058
     Dates: end: 20121108
  3. FUROSEMIDE [Suspect]
  4. CANDESARTAN [Suspect]
  5. SPIRONOLACTONE [Suspect]
  6. ASPIRIN [Concomitant]
  7. BISOPROLOL [Concomitant]
  8. INSULIN [Concomitant]
  9. OMEPRAZOLE [Concomitant]

REACTIONS (3)
  - Renal failure acute [Unknown]
  - Therapeutic response unexpected [Unknown]
  - Nausea [Recovered/Resolved]
